FAERS Safety Report 17654693 (Version 1)
Quarter: 2020Q2

REPORT INFORMATION
  Report Type: Spontaneous
  Country: DE (occurrence: DE)
  Receive Date: 20200410
  Receipt Date: 20200410
  Transmission Date: 20200713
  Serious: Yes (Death, Other)
  Sender: FDA-Public Use
  Company Number: DE-ELI_LILLY_AND_COMPANY-DE202004002533

PATIENT
  Age: 64 Year
  Sex: Male

DRUGS (6)
  1. PEMBROLIZUMAB. [Suspect]
     Active Substance: PEMBROLIZUMAB
     Indication: PRODUCT USED FOR UNKNOWN INDICATION
     Dosage: MAINTENANCE THERAPY
     Route: 065
     Dates: start: 20180814, end: 20190108
  2. CISPLATIN. [Suspect]
     Active Substance: CISPLATIN
     Indication: NEOPLASM MALIGNANT
     Dosage: 2ND LINE THERAPY, FOR TOTAL OF 4 CYCLES
     Route: 065
     Dates: start: 20180524, end: 20180726
  3. PEMETREXED. [Suspect]
     Active Substance: PEMETREXED
     Dosage: CYCLICAL (MANTENANCE)
     Route: 065
     Dates: end: 201901
  4. PEMETREXED. [Suspect]
     Active Substance: PEMETREXED
     Indication: NEOPLASM MALIGNANT
     Dosage: 2ND LINE THERAPY, FOR TOTAL OF 4 CYCLES
     Route: 065
     Dates: start: 20180524, end: 20180726
  5. NINTEDANIB [Suspect]
     Active Substance: NINTEDANIB
     Indication: NEOPLASM MALIGNANT
     Dosage: 3RD LINE THERAPY
     Route: 065
     Dates: start: 20190521, end: 20190722
  6. DOCETAXEL. [Suspect]
     Active Substance: DOCETAXEL
     Indication: NEOPLASM MALIGNANT
     Dosage: 3RD LINE THERAPY
     Route: 065
     Dates: start: 20190528, end: 20190709

REACTIONS (4)
  - Pleural effusion [Unknown]
  - Off label use [Unknown]
  - Death [Fatal]
  - Malignant neoplasm progression [Unknown]

NARRATIVE: CASE EVENT DATE: 2019
